FAERS Safety Report 6893793-5 (Version None)
Quarter: 2010Q3

REPORT INFORMATION
  Report Type: 
  Country: None (occurrence: None)
  Receive Date: 20100802
  Receipt Date: 20100722
  Transmission Date: 20110219
  Serious: Yes (Hospitalization)
  Sender: FDA-Public Use
  Company Number: US-BIOGENIDEC-2010BI024894

PATIENT
  Sex: Female
  Weight: 73 kg

DRUGS (5)
  1. AVONEX [Suspect]
     Indication: MULTIPLE SCLEROSIS
     Route: 030
     Dates: start: 19971101, end: 20030101
  2. AVONEX [Suspect]
     Route: 030
     Dates: start: 20030101
  3. AVONEX [Suspect]
     Route: 030
  4. AVONEX [Suspect]
     Route: 030
  5. ZANTAC [Concomitant]
     Indication: GASTROOESOPHAGEAL REFLUX DISEASE

REACTIONS (7)
  - CYST [None]
  - FALL [None]
  - HEAD INJURY [None]
  - JOINT EFFUSION [None]
  - JOINT INJURY [None]
  - OSTEOARTHRITIS [None]
  - WEIGHT DECREASED [None]
